FAERS Safety Report 9429216 (Version 1)
Quarter: 2013Q3

REPORT INFORMATION
  Report Type: Spontaneous
  Country: US (occurrence: US)
  Receive Date: 20130730
  Receipt Date: 20130730
  Transmission Date: 20140515
  Serious: No
  Sender: FDA-Public Use
  Company Number: US-BAYER-2013-090327

PATIENT
  Age: 27 Year
  Sex: Female

DRUGS (1)
  1. SAFYRAL [Suspect]
     Indication: MENORRHAGIA
     Dosage: UNK
     Route: 048
     Dates: start: 200612

REACTIONS (1)
  - Drug administration error [None]
